FAERS Safety Report 15284251 (Version 1)
Quarter: 2018Q4

REPORT INFORMATION
  Report Type: Report from Study
  Country: IT (occurrence: IT)
  Receive Date: 20180816
  Receipt Date: 20180816
  Transmission Date: 20190204
  Serious: Yes (Other)
  Sender: FDA-Public Use
  Company Number: IT-TEVA-2018-IT-921635

PATIENT
  Age: 55 Year
  Sex: Male

DRUGS (7)
  1. FLUORO-URACILE MEDA [Suspect]
     Active Substance: FLUOROURACIL
     Route: 065
  2. OXALIPLATIN. [Suspect]
     Active Substance: OXALIPLATIN
     Route: 065
  3. INSULIN [Concomitant]
     Active Substance: INSULIN NOS
  4. ARIXTRA 7.5 MG/0.6?ML SOLUTION FOR INJECTION, PRE-FILLED SYRINGE [Concomitant]
  5. FOLINA [Suspect]
     Active Substance: FOLIC ACID
     Route: 065
  6. PANTORC [Concomitant]
     Active Substance: PANTOPRAZOLE SODIUM
  7. MEDROL [Concomitant]
     Active Substance: METHYLPREDNISOLONE

REACTIONS (1)
  - Hypotension [Recovered/Resolved]

NARRATIVE: CASE EVENT DATE: 20180307
